FAERS Safety Report 4283418-X (Version None)
Quarter: 2004Q1

REPORT INFORMATION
  Report Type: 
  Country: None (occurrence: None)
  Receive Date: 20040115
  Receipt Date: 20030812
  Transmission Date: 20041129
  Serious: Yes (Other)
  Sender: FDA-Public Use
  Company Number: US-JNJFOC-20030704557

PATIENT
  Age: 61 Year
  Sex: Female

DRUGS (6)
  1. DOXIL [Suspect]
     Indication: OVARIAN CANCER
     Dosage: 50 MG/M2, INTRAVENOUS
     Route: 042
     Dates: start: 20030619, end: 20030619
  2. SENOKOT [Concomitant]
  3. COUMADIN [Concomitant]
  4. CLARINIEX DESLORATADINE [Concomitant]
  5. DEXAMETHASONE [Concomitant]
  6. DIPHENHYDRAMINE HCL [Concomitant]

REACTIONS (3)
  - DYSPNOEA [None]
  - ERYTHEMA [None]
  - INFUSION RELATED REACTION [None]
